FAERS Safety Report 7231926-1 (Version None)
Quarter: 2011Q1

REPORT INFORMATION
  Report Type: 
  Country: None (occurrence: None)
  Receive Date: 20110118
  Receipt Date: 20110112
  Transmission Date: 20110831
  Serious: Yes (Other)
  Sender: FDA-Public Use
  Company Number: US-PFIZER INC-2011008554

PATIENT
  Sex: Female

DRUGS (2)
  1. XANAX [Suspect]
     Indication: PANIC DISORDER
     Dosage: 1.5 MG, AS NEEDED
     Route: 048
  2. XANAX [Suspect]
     Indication: ANXIETY DISORDER

REACTIONS (4)
  - FIBROMYALGIA [None]
  - ANXIETY [None]
  - INTERVERTEBRAL DISC DEGENERATION [None]
  - PANIC ATTACK [None]
